FAERS Safety Report 5498872-5 (Version None)
Quarter: 2007Q4

REPORT INFORMATION
  Report Type: 
  Country: None (occurrence: None)
  Receive Date: 20071026
  Receipt Date: 20070730
  Transmission Date: 20080405
  Serious: No
  Sender: FDA-Public Use
  Company Number: A0666897A

PATIENT
  Sex: Female

DRUGS (9)
  1. ADVAIR DISKUS 100/50 [Suspect]
     Indication: ASTHMA
     Route: 055
  2. ALLEGRA D 24 HOUR [Concomitant]
  3. ALLEGRA [Concomitant]
  4. COUMADIN [Concomitant]
  5. GLUCOVANCE [Concomitant]
  6. ARIMIDEX [Concomitant]
  7. SYNTHROID [Concomitant]
  8. FOSAMAX [Concomitant]
  9. NEXIUM [Concomitant]

REACTIONS (2)
  - DRY MOUTH [None]
  - PHARMACEUTICAL PRODUCT COMPLAINT [None]
